FAERS Safety Report 7369514-9 (Version None)
Quarter: 2011Q1

REPORT INFORMATION
  Report Type: 
  Country: None (occurrence: None)
  Receive Date: 20110321
  Receipt Date: 20110321
  Transmission Date: 20110831
  Serious: Yes (Hospitalization)
  Sender: FDA-Public Use
  Company Number: None

PATIENT
  Age: 66 Year
  Sex: Male
  Weight: 72 kg

DRUGS (1)
  1. ROSUVASTATIN [Suspect]
     Indication: RHABDOMYOLYSIS
     Dosage: 40 MG EVERY DAY PO
     Route: 048
     Dates: start: 20100316, end: 20101123

REACTIONS (3)
  - DIALYSIS [None]
  - LIVER FUNCTION TEST ABNORMAL [None]
  - RHABDOMYOLYSIS [None]
